FAERS Safety Report 8410097-X (Version None)
Quarter: 2012Q2

REPORT INFORMATION
  Report Type: 
  Country: None (occurrence: None)
  Receive Date: 20120323
  Receipt Date: 20111014
  Transmission Date: 20120825
  Serious: Yes (Other)
  Sender: FDA-Public Use
  Company Number: 163-21880-11101799

PATIENT
  Age: 60 Year
  Sex: Male
  Weight: 75.2971 kg

DRUGS (4)
  1. REVLIMID [Suspect]
     Indication: 5Q MINUS SYNDROME
     Dosage: 10 MG, 1 IN 1 D, PO
     Route: 048
     Dates: start: 20110922
  2. PAPAYA LEAF EXTRACT (CARICA PAPAYA)(UNKNOWN) [Concomitant]
  3. FOLIC  ACID(FOLIC ACID)(UNKNOWN) [Concomitant]
  4. VITAMIN C (ASCORBIC [Concomitant]

REACTIONS (1)
  - PLATELET COUNT DECREASED [None]
